FAERS Safety Report 10184165 (Version 1)
Quarter: 2014Q2

REPORT INFORMATION
  Report Type: Spontaneous
  Country: US (occurrence: US)
  Receive Date: 20140520
  Receipt Date: 20140520
  Transmission Date: 20141212
  Serious: Yes (Other)
  Sender: FDA-Public Use
  Company Number: US-FRI-1000067433

PATIENT
  Age: 83 Year
  Sex: Male

DRUGS (5)
  1. VIIBRYD [Suspect]
     Indication: DEPRESSION
     Dosage: 10 MG
     Route: 048
     Dates: start: 20140513
  2. VICODIN [Concomitant]
     Indication: PAIN
  3. LYRICA [Concomitant]
     Indication: PAIN IN EXTREMITY
  4. ZOCOR [Concomitant]
     Indication: BLOOD CHOLESTEROL INCREASED
  5. BABY ASPIRIN [Concomitant]
     Dosage: 81 MG

REACTIONS (2)
  - Rectal haemorrhage [Not Recovered/Not Resolved]
  - Faeces discoloured [Not Recovered/Not Resolved]
